FAERS Safety Report 12764304 (Version 1)
Quarter: 2016Q3

REPORT INFORMATION
  Report Type: Spontaneous
  Country: US (occurrence: US)
  Receive Date: 20160920
  Receipt Date: 20160920
  Transmission Date: 20161109
  Serious: No
  Sender: FDA-Public Use
  Company Number: US-PFIZER INC-2016437440

PATIENT
  Age: 38 Year
  Sex: Male
  Weight: 74.83 kg

DRUGS (1)
  1. EPIPEN [Suspect]
     Active Substance: EPINEPHRINE
     Indication: ARTHROPOD STING
     Dosage: 0.3 MG, PRN
     Route: 030
     Dates: start: 20160907, end: 20160907

REACTIONS (4)
  - Injection site discolouration [Unknown]
  - Intentional product misuse [Recovered/Resolved]
  - Accidental exposure to product [Unknown]
  - Injection site hypoaesthesia [Unknown]

NARRATIVE: CASE EVENT DATE: 20160907
